FAERS Safety Report 12876963 (Version 1)
Quarter: 2016Q4

REPORT INFORMATION
  Report Type: Spontaneous
  Country: US (occurrence: US)
  Receive Date: 20161021
  Receipt Date: 20161021
  Transmission Date: 20170207
  Serious: No
  Sender: FDA-Public Use
  Company Number: None

PATIENT
  Age: 73 Year
  Sex: Male

DRUGS (1)
  1. VANCOMYCIN 1 GRAM HOSPIRA [Suspect]
     Active Substance: VANCOMYCIN
     Indication: SKIN ULCER
     Route: 042
     Dates: start: 20160726, end: 20160801

REACTIONS (1)
  - Deafness [None]

NARRATIVE: CASE EVENT DATE: 20160801
